FAERS Safety Report 9681936 (Version 1)
Quarter: 2013Q4

REPORT INFORMATION
  Report Type: Spontaneous
  Country: CH (occurrence: CH)
  Receive Date: 20131111
  Receipt Date: 20131111
  Transmission Date: 20140711
  Serious: Yes (Hospitalization)
  Sender: FDA-Public Use
  Company Number: CH-TEVA-443037ISR

PATIENT
  Age: 38 Year
  Sex: Male

DRUGS (13)
  1. OBRACIN [Suspect]
     Indication: PSEUDOMONAS INFECTION
     Dosage: 225 MG/ML DAILY; 1 DF = 75MG/ML
     Route: 041
     Dates: start: 20131011, end: 20131016
  2. TAZOBAC [Suspect]
     Indication: PSEUDOMONAS INFECTION
     Dosage: 3 DOSAGE FORMS DAILY; 1 DF = 4.0G PIPERACILLIN + 0.5G TAZOBACTAM
     Route: 041
     Dates: start: 20131011, end: 20131016
  3. CREON 25000 [Concomitant]
     Dosage: CONTINUING
     Route: 048
  4. SEREVENT [Concomitant]
     Dosage: 1 DOSAGE FORMS DAILY; CONTINUING
     Route: 055
  5. FLUIMUCIL [Concomitant]
     Dosage: 1800 MILLIGRAM DAILY; 1 DF = 600MG; CONTINUING
     Route: 048
  6. NEXIUM [Concomitant]
     Dosage: 44.5 MILLIGRAM DAILY; 1 DF = 44.5MG; CONTINUING
     Route: 048
  7. VITAMIN D3 [Concomitant]
     Dosage: 5 GTT DAILY; CONTINUING
     Route: 048
  8. EPHYNAL [Concomitant]
     Dosage: 300 MILLIGRAM DAILY; 1 DF = 300MG; CONTINUING
     Route: 048
  9. CLACIMAGON D3 [Concomitant]
     Dosage: 1 DOSAGE FORMS DAILY; CONTINUING
     Route: 048
  10. BURGERSTEIN MULTIVITAMIN [Concomitant]
     Dosage: 1 DOSAGE FORMS DAILY; CONTINUING
     Route: 048
  11. TOBI [Concomitant]
     Indication: UPPER RESPIRATORY TRACT INFECTION
     Dosage: STOPPED AFTER ADMISSION
     Route: 055
     Dates: end: 20131011
  12. CASTON [Concomitant]
     Indication: UPPER RESPIRATORY TRACT INFECTION
     Dosage: 75 MILLIGRAM DAILY; STOPPED AFTER ADMISSION
     Route: 055
     Dates: end: 20131011
  13. PULMOZYME [Concomitant]
     Dosage: 5 MILLIGRAM DAILY; 1 DF = 2.5MG
     Route: 055
     Dates: start: 20131011

REACTIONS (4)
  - Drug hypersensitivity [Recovered/Resolved]
  - Rash [Recovered/Resolved]
  - Oedema [Recovered/Resolved]
  - Pyrexia [Recovered/Resolved]
